FAERS Safety Report 8215494-3 (Version None)
Quarter: 2012Q1

REPORT INFORMATION
  Report Type: 
  Country: None (occurrence: None)
  Receive Date: 20120316
  Receipt Date: 20120309
  Transmission Date: 20120608
  Serious: Yes (Other)
  Sender: FDA-Public Use
  Company Number: BR-ROCHE-1047561

PATIENT
  Age: 22 Year
  Sex: Female

DRUGS (2)
  1. ISOTRETINOIN [Suspect]
  2. ISOTRETINOIN [Suspect]
     Indication: ACNE CYSTIC

REACTIONS (2)
  - ACNE [None]
  - THROAT CANCER [None]
